FAERS Safety Report 15479867 (Version 11)
Quarter: 2019Q4

REPORT INFORMATION
  Report Type: Spontaneous
  Country: US (occurrence: US)
  Receive Date: 20181009
  Receipt Date: 20191206
  Transmission Date: 20200122
  Serious: Yes (Hospitalization, Other)
  Sender: FDA-Public Use
  Company Number: US-GLAXOSMITHKLINE-US2018GSK180094

PATIENT
  Sex: Female

DRUGS (8)
  1. ESOMEPRAZOLE. [Suspect]
     Active Substance: ESOMEPRAZOLE MAGNESIUM
     Indication: GASTROOESOPHAGEAL REFLUX DISEASE
     Dosage: 40 MG, BID
     Route: 065
  2. ESOMEPRAZOLE. [Suspect]
     Active Substance: ESOMEPRAZOLE MAGNESIUM
     Dosage: 20 MG, BID
     Route: 065
  3. PANTOPRAZOLE [Suspect]
     Active Substance: PANTOPRAZOLE
     Indication: GASTROOESOPHAGEAL REFLUX DISEASE
     Dosage: 40 MG, BID
     Route: 048
  4. LANSOPRAZOLE. [Suspect]
     Active Substance: LANSOPRAZOLE
     Indication: GASTROOESOPHAGEAL REFLUX DISEASE
     Dosage: UNK
     Route: 065
  5. PREVACID [Suspect]
     Active Substance: LANSOPRAZOLE
     Indication: GASTROOESOPHAGEAL REFLUX DISEASE
     Dosage: UNK
     Route: 065
  6. PREVACID [Suspect]
     Active Substance: LANSOPRAZOLE
     Indication: GASTROOESOPHAGEAL REFLUX DISEASE
     Dosage: UNK
     Route: 065
  7. OMEPRAZOLE. [Suspect]
     Active Substance: OMEPRAZOLE
     Indication: GASTROOESOPHAGEAL REFLUX DISEASE
     Dosage: 40 MG, QD
     Route: 065
  8. OMEPRAZOLE. [Suspect]
     Active Substance: OMEPRAZOLE
     Dosage: 40 MG, BID
     Route: 065

REACTIONS (26)
  - Urinary incontinence [Unknown]
  - Proteinuria [Unknown]
  - Renal disorder [Unknown]
  - Tubulointerstitial nephritis [Unknown]
  - Nephropathy [Unknown]
  - Stent placement [Unknown]
  - Chronic kidney disease [Unknown]
  - Renal atrophy [Unknown]
  - Kidney infection [Unknown]
  - End stage renal disease [Unknown]
  - Pyelogram retrograde [Unknown]
  - Renal failure [Unknown]
  - Nephrotic syndrome [Unknown]
  - Diabetic nephropathy [Unknown]
  - Pelvi-ureteric obstruction [Unknown]
  - Acute kidney injury [Unknown]
  - Renal impairment [Unknown]
  - Nephrogenic anaemia [Unknown]
  - Hydronephrosis [Unknown]
  - Nephrosclerosis [Unknown]
  - Chronic kidney disease-mineral and bone disorder [Unknown]
  - Urge incontinence [Unknown]
  - Dysuria [Unknown]
  - Pyeloplasty [Unknown]
  - Urinary retention [Unknown]
  - Hypertonic bladder [Unknown]
